FAERS Safety Report 8324872-3 (Version None)
Quarter: 2012Q2

REPORT INFORMATION
  Report Type: 
  Country: None (occurrence: None)
  Receive Date: 20120501
  Receipt Date: 20120425
  Transmission Date: 20120825
  Serious: Yes (Hospitalization)
  Sender: FDA-Public Use
  Company Number: US-PFIZER INC-2012040975

PATIENT
  Sex: Female
  Weight: 77.098 kg

DRUGS (14)
  1. CELEBREX [Suspect]
     Indication: ARTHRITIS
     Dosage: UNK MG, 1X/DAY
     Route: 048
     Dates: start: 20120204, end: 20120206
  2. SEROQUEL [Concomitant]
     Dosage: UNK
  3. SIMVASTATIN [Concomitant]
     Dosage: UNK
  4. CYMBALTA [Concomitant]
     Dosage: UNK
  5. CELEBREX [Suspect]
     Indication: ARTHRALGIA
  6. LASIX [Concomitant]
     Dosage: UNK
  7. ASPIRIN [Concomitant]
     Dosage: 81 (UNITS NOT PROVIDED), UNK
  8. KLONOPIN [Concomitant]
     Dosage: UNK
  9. BIOTIN [Concomitant]
     Dosage: UNK
  10. CELEBREX [Suspect]
     Indication: BACK PAIN
  11. CELEBREX [Suspect]
     Indication: OSTEOARTHRITIS
  12. LISINOPRIL [Concomitant]
     Dosage: UNK
  13. NORVASC [Concomitant]
     Dosage: UNK
  14. PREMARIN [Concomitant]
     Dosage: UNK

REACTIONS (9)
  - HYPOTENSION [None]
  - DYSSTASIA [None]
  - FALL [None]
  - MALAISE [None]
  - BLOOD CHOLESTEROL INCREASED [None]
  - DIARRHOEA [None]
  - DRUG INEFFECTIVE [None]
  - DRUG INTOLERANCE [None]
  - DEHYDRATION [None]
